FAERS Safety Report 5358418-9 (Version None)
Quarter: 2007Q2

REPORT INFORMATION
  Report Type: 
  Country: None (occurrence: None)
  Receive Date: 20070530
  Receipt Date: 20061120
  Transmission Date: 20071010
  Serious: Yes (Other)
  Sender: FDA-Public Use
  Company Number: US200511002410

PATIENT
  Age: 47 Year
  Sex: Female
  Weight: 99.8 kg

DRUGS (7)
  1. ZYPREXA [Suspect]
     Indication: BIPOLAR DISORDER
     Dosage: SEE IMAGE
     Route: 048
  2. HALODOL (HALOPERIDOL) [Concomitant]
  3. SERQUEL (QUETIAPINE FUMARATE) [Concomitant]
  4. RISPERDAL /SWE/ (RISPERIDONE) [Concomitant]
  5. DEPAKOTE [Concomitant]
  6. NAVANE [Concomitant]
  7. ZOLOFT [Concomitant]

REACTIONS (4)
  - BLOOD TRIGLYCERIDES INCREASED [None]
  - DIABETES MELLITUS NON-INSULIN-DEPENDENT [None]
  - PRESCRIBED OVERDOSE [None]
  - WEIGHT INCREASED [None]
